FAERS Safety Report 6613639-X (Version None)
Quarter: 2010Q1

REPORT INFORMATION
  Report Type: 
  Country: None (occurrence: None)
  Receive Date: 20100304
  Receipt Date: 20100203
  Transmission Date: 20100710
  Serious: Yes (Other)
  Sender: FDA-Public Use
  Company Number: FR-ROCHE-683832

PATIENT
  Sex: Female

DRUGS (3)
  1. RIBAVIRIN [Suspect]
     Indication: HEPATITIS C
     Dosage: DRUG REPORTED AS RIBAVIRINE
     Route: 065
  2. RIBAVIRIN [Suspect]
     Route: 065
  3. NEORECORMON [Suspect]
     Indication: ANAEMIA
     Route: 058

REACTIONS (2)
  - ANAEMIA [None]
  - ANTI-ERYTHROPOIETIN ANTIBODY POSITIVE [None]
